FAERS Safety Report 24895828 (Version 1)
Quarter: 2025Q1

REPORT INFORMATION
  Report Type: Spontaneous
  Country: US (occurrence: US)
  Receive Date: 20250128
  Receipt Date: 20250128
  Transmission Date: 20250409
  Serious: No
  Sender: UPSHER SMITH LABORATORIES
  Company Number: US-UPSHER-SMITH LABORATORIES, LLC-2024USL00101

PATIENT
  Age: 32 Year
  Sex: Female

DRUGS (3)
  1. ISOTRETINOIN [Suspect]
     Active Substance: ISOTRETINOIN
     Indication: Acne
     Route: 048
  2. ISOTRETINOIN [Suspect]
     Active Substance: ISOTRETINOIN
     Route: 048
     Dates: start: 20191014
  3. ISOTRETINOIN [Suspect]
     Active Substance: ISOTRETINOIN
     Route: 048
     Dates: start: 20200124

REACTIONS (24)
  - Acne [Unknown]
  - Rosacea [Unknown]
  - Mean cell volume increased [Unknown]
  - Scar [Unknown]
  - Blood alkaline phosphatase decreased [Unknown]
  - Skin wrinkling [Unknown]
  - Mean cell haemoglobin increased [Unknown]
  - Carbon dioxide decreased [Unknown]
  - C-reactive protein increased [Unknown]
  - Blood sodium decreased [Unknown]
  - Skin discolouration [Unknown]
  - Blood glucose increased [Unknown]
  - Sunburn [Unknown]
  - Dry skin [Unknown]
  - Lip dry [Unknown]
  - Pigmentation disorder [Unknown]
  - Erythema [Unknown]
  - Blood cholesterol increased [Unknown]
  - Skin hyperpigmentation [Unknown]
  - Low density lipoprotein increased [Unknown]
  - Gamma-glutamyltransferase increased [Unknown]
  - Unevaluable event [Unknown]
  - Unevaluable event [Unknown]
  - Product dispensing issue [Unknown]

NARRATIVE: CASE EVENT DATE: 20190826
